FAERS Safety Report 6242118-7 (Version None)
Quarter: 2009Q2

REPORT INFORMATION
  Report Type: 
  Country: None (occurrence: None)
  Receive Date: 20090624
  Receipt Date: 20080529
  Transmission Date: 20091009
  Serious: Yes (Other)
  Sender: FDA-Public Use
  Company Number: US-ASTRAZENECA-2008UW00798

PATIENT
  Age: 46 Year
  Sex: Female
  Weight: 81.6 kg

DRUGS (21)
  1. SEROQUEL [Suspect]
     Indication: SLEEP DISORDER
     Dosage: 25 MG, 100 MG, 300 MG, 400 MG
     Route: 048
     Dates: start: 20000101
  2. SEROQUEL [Suspect]
     Indication: BIPOLAR DISORDER
     Dosage: 25 MG, 100 MG, 300 MG, 400 MG
     Route: 048
     Dates: start: 20000101
  3. SEROQUEL [Suspect]
     Dosage: 25 MG-400 MG
     Route: 048
     Dates: start: 20020107
  4. SEROQUEL [Suspect]
     Dosage: 25 MG-400 MG
     Route: 048
     Dates: start: 20020107
  5. ABILIFY [Concomitant]
     Dates: start: 20030101
  6. RISPERDAL [Concomitant]
     Dates: start: 20020101
  7. HALDOL [Concomitant]
  8. SOLIAN [Concomitant]
  9. THORAZINE [Concomitant]
  10. ZYPREXA [Concomitant]
  11. PAXIL [Concomitant]
  12. LIPITOR [Concomitant]
  13. LEXAPRO [Concomitant]
     Indication: BIPOLAR DISORDER
  14. AMBIEN [Concomitant]
     Indication: SLEEP DISORDER
     Route: 048
  15. HYDROXYZINE PAMOATE [Concomitant]
     Indication: PRURITUS
     Route: 048
  16. HYDROXYZINE PAMOATE [Concomitant]
     Indication: ANXIETY
     Route: 048
  17. HYDROCODONE BITARTRATE + ACETAMINOPHEN [Concomitant]
     Dosage: 5/500 MG PO QID
     Route: 048
  18. DIAZEPAM [Concomitant]
     Route: 048
  19. REMERON [Concomitant]
     Dosage: 7.5 MG - 15 MG
     Route: 048
  20. DETROL [Concomitant]
     Route: 048
  21. LEVAQUIN [Concomitant]
     Route: 048

REACTIONS (22)
  - ARTHRITIS [None]
  - ARTHROPATHY [None]
  - BLOOD CHOLESTEROL INCREASED [None]
  - DEHYDRATION [None]
  - DIABETES MELLITUS [None]
  - DIABETIC COMPLICATION [None]
  - DISEASE RECURRENCE [None]
  - DIZZINESS [None]
  - GINGIVAL SWELLING [None]
  - GLYCOSURIA [None]
  - HYPERGLYCAEMIA [None]
  - IRRITABLE BOWEL SYNDROME [None]
  - LOSS OF CONSCIOUSNESS [None]
  - MAJOR DEPRESSION [None]
  - MIGRAINE [None]
  - OVERWEIGHT [None]
  - PAIN IN EXTREMITY [None]
  - SPINAL OSTEOARTHRITIS [None]
  - STRESS [None]
  - SYNCOPE [None]
  - URINARY TRACT INFECTION [None]
  - VISION BLURRED [None]
